FAERS Safety Report 9089644 (Version 1)
Quarter: 2013Q1

REPORT INFORMATION
  Report Type: Report from Study
  Country: US (occurrence: US)
  Receive Date: 20130201
  Receipt Date: 20130201
  Transmission Date: 20140127
  Serious: No
  Sender: FDA-Public Use
  Company Number: US-ABBOTT-12P-163-1026798-00

PATIENT
  Age: 28 Year
  Sex: Male

DRUGS (4)
  1. HUMIRA [Suspect]
     Indication: CROHN^S DISEASE
     Dates: start: 20121207
  2. PROAIR [Concomitant]
     Indication: ASTHMA
  3. ADVAIR DISCUS [Concomitant]
     Indication: ASTHMA
  4. PRILOSEC [Concomitant]
     Indication: DYSPEPSIA

REACTIONS (3)
  - Rhinorrhoea [Not Recovered/Not Resolved]
  - Sneezing [Not Recovered/Not Resolved]
  - Cough [Not Recovered/Not Resolved]
